FAERS Safety Report 8015861-7 (Version None)
Quarter: 2011Q4

REPORT INFORMATION
  Report Type: 
  Country: None (occurrence: None)
  Receive Date: 20111230
  Receipt Date: 20111228
  Transmission Date: 20120403
  Serious: Yes (Death)
  Sender: FDA-Public Use
  Company Number: US-ROCHE-1026240

PATIENT
  Sex: Male

DRUGS (4)
  1. PROGRAF [Concomitant]
  2. MYCOPHENOLATE MOFETIL (CELLCEPT) [Suspect]
  3. MYCOPHENOLATE MOFETIL (CELLCEPT) [Suspect]
  4. MYCOPHENOLATE MOFETIL (CELLCEPT) [Suspect]
     Indication: PRODUCT USED FOR UNKNOWN INDICATION

REACTIONS (1)
  - DEATH [None]
